FAERS Safety Report 12271264 (Version 1)
Quarter: 2016Q2

REPORT INFORMATION
  Report Type: Spontaneous
  Country: US (occurrence: None)
  Receive Date: 20160414
  Receipt Date: 20160414
  Transmission Date: 20160815
  Serious: No
  Sender: FDA-Public Use
  Company Number: None

PATIENT
  Sex: Female

DRUGS (2)
  1. HUMIRA [Suspect]
     Active Substance: ADALIMUMAB
     Indication: CROHN^S DISEASE
     Dosage: 160MG DAY 1, THEN 80MG DAY 15 SQ
     Route: 058
     Dates: start: 20160225, end: 20160325
  2. HUMIRA [Suspect]
     Active Substance: ADALIMUMAB
     Indication: CROHN^S DISEASE
     Route: 058
     Dates: start: 20150321

REACTIONS (4)
  - Influenza like illness [None]
  - Abdominal pain [None]
  - Flushing [None]
  - Therapy cessation [None]
